FAERS Safety Report 23735478 (Version 1)
Quarter: 2024Q2

REPORT INFORMATION
  Report Type: Other
  Country: US (occurrence: US)
  Receive Date: 20240412
  Receipt Date: 20240412
  Transmission Date: 20240716
  Serious: Yes (Hospitalization, Other)
  Sender: FDA-Public Use
  Company Number: USMLMSERVICE-20240328-4916212-1

PATIENT
  Age: 51 Year
  Sex: Male

DRUGS (1)
  1. OXYGEN [Suspect]
     Active Substance: OXYGEN
     Indication: Osteomyelitis
     Route: 065

REACTIONS (3)
  - Hypotension [Unknown]
  - Supraventricular tachycardia [Recovered/Resolved]
  - Hyperhidrosis [Unknown]
